FAERS Safety Report 18001365 (Version 2)
Quarter: 2020Q3

REPORT INFORMATION
  Report Type: Spontaneous
  Country: GB (occurrence: GB)
  Receive Date: 20200709
  Receipt Date: 20200812
  Transmission Date: 20201103
  Serious: Yes (Other)
  Sender: FDA-Public Use
  Company Number: GB-MYLANLABS-2020M1062025

PATIENT
  Age: 74 Year
  Sex: Male

DRUGS (1)
  1. EFUDIX 5 % CREME [Suspect]
     Active Substance: FLUOROURACIL
     Indication: PRODUCT USED FOR UNKNOWN INDICATION
     Dosage: APPLIED IT ON THE SKIN ONCE DAILY TO START WITH AND LATER ON, TWICE DAILY
     Dates: start: 20200418

REACTIONS (3)
  - Malignant melanoma [Not Recovered/Not Resolved]
  - Skin discolouration [Not Recovered/Not Resolved]
  - Acne pustular [Not Recovered/Not Resolved]
